FAERS Safety Report 18619752 (Version 3)
Quarter: 2021Q1

REPORT INFORMATION
  Report Type: Spontaneous
  Country: US (occurrence: US)
  Receive Date: 20201215
  Receipt Date: 20210112
  Transmission Date: 20210419
  Serious: No
  Sender: FDA-Public Use
  Company Number: US-PFIZER INC-2020490538

PATIENT
  Age: 54 Year
  Sex: Female

DRUGS (1)
  1. IBRANCE [Suspect]
     Active Substance: PALBOCICLIB
     Indication: BREAST CANCER FEMALE
     Dosage: 125 MG

REACTIONS (9)
  - Nerve compression [Recovering/Resolving]
  - Muscle spasms [Unknown]
  - Rash pruritic [Unknown]
  - Myalgia [Unknown]
  - Hypoaesthesia [Unknown]
  - Diarrhoea [Not Recovered/Not Resolved]
  - Joint range of motion decreased [Unknown]
  - Night sweats [Not Recovered/Not Resolved]
  - Miliaria [Not Recovered/Not Resolved]
